FAERS Safety Report 16171018 (Version 1)
Quarter: 2019Q2

REPORT INFORMATION
  Report Type: Spontaneous
  Country: GB (occurrence: GB)
  Receive Date: 20190408
  Receipt Date: 20190408
  Transmission Date: 20190711
  Serious: Yes (Disabling)
  Sender: FDA-Public Use
  Company Number: GB-TEVA-2019-GB-1033925

PATIENT
  Age: 44 Year
  Sex: Female
  Weight: 62 kg

DRUGS (2)
  1. OFLOXACIN. [Suspect]
     Active Substance: OFLOXACIN
     Indication: PELVIC INFLAMMATORY DISEASE
     Dosage: 1200 MILLIGRAM DAILY;
     Route: 048
     Dates: start: 20181218, end: 20181225
  2. METRONIDAZOLE. [Concomitant]
     Active Substance: METRONIDAZOLE
     Dates: start: 20181218

REACTIONS (16)
  - Palpitations [Unknown]
  - Musculoskeletal stiffness [Unknown]
  - Tendon pain [Unknown]
  - Lupus-like syndrome [Not Recovered/Not Resolved]
  - Fatigue [Unknown]
  - Disturbance in attention [Unknown]
  - Insomnia [Unknown]
  - Muscle twitching [Unknown]
  - Paraesthesia [Unknown]
  - Feeling abnormal [Unknown]
  - Alopecia [Unknown]
  - Arthropathy [Unknown]
  - Myalgia [Unknown]
  - Confusional state [Unknown]
  - Dissociation [Unknown]
  - Muscle atrophy [Unknown]

NARRATIVE: CASE EVENT DATE: 20190107
